FAERS Safety Report 19193959 (Version 2)
Quarter: 2021Q2

REPORT INFORMATION
  Report Type: Spontaneous
  Country: IT (occurrence: IT)
  Receive Date: 20210429
  Receipt Date: 20210510
  Transmission Date: 20210717
  Serious: Yes (Other)
  Sender: FDA-Public Use
  Company Number: IT-ACCORD-223540

PATIENT
  Age: 2 Month
  Sex: Male
  Weight: 2 kg

DRUGS (2)
  1. FENTANYL. [Concomitant]
     Active Substance: FENTANYL
     Indication: SEDATION
     Route: 042
     Dates: start: 20210104, end: 20210304
  2. DEXMEDETOMIDINE/DEXMEDETOMIDINE HYDROCHLORIDE [Suspect]
     Active Substance: DEXMEDETOMIDINE HYDROCHLORIDE
     Indication: SEDATION COMPLICATION
     Route: 042
     Dates: start: 20210211, end: 20210328

REACTIONS (3)
  - Ascites [Recovering/Resolving]
  - Oedema [Recovering/Resolving]
  - Hypoalbuminaemia [Recovering/Resolving]

NARRATIVE: CASE EVENT DATE: 20210227
